FAERS Safety Report 26096775 (Version 2)
Quarter: 2025Q4

REPORT INFORMATION
  Report Type: Spontaneous
  Country: JP (occurrence: JP)
  Receive Date: 20251127
  Receipt Date: 20251204
  Transmission Date: 20260118
  Serious: Yes (Death)
  Sender: JOHNSON AND JOHNSON
  Company Number: JP-NShinyaku-EVA20251572401001307081

PATIENT
  Sex: Female

DRUGS (1)
  1. UPTRAVI [Suspect]
     Active Substance: SELEXIPAG
     Indication: Pulmonary arterial hypertension
     Route: 048

REACTIONS (1)
  - Cardiac disorder [Fatal]
